FAERS Safety Report 11265339 (Version 1)
Quarter: 2015Q3

REPORT INFORMATION
  Report Type: Spontaneous
  Country: US (occurrence: US)
  Receive Date: 20150713
  Receipt Date: 20150713
  Transmission Date: 20151125
  Serious: No
  Sender: FDA-Public Use
  Company Number: US-BIOGENIDEC-2015BI093109

PATIENT
  Age: 52 Year
  Sex: Female

DRUGS (6)
  1. AVONEX [Suspect]
     Active Substance: INTERFERON BETA-1A
     Indication: MULTIPLE SCLEROSIS
     Route: 030
     Dates: start: 200502
  2. AMETRIL (NOS) [Concomitant]
     Indication: HEADACHE
  3. CALCIUM CARBONATE. [Concomitant]
     Active Substance: CALCIUM CARBONATE
     Indication: OSTEOPENIA
  4. LORATADINE. [Concomitant]
     Active Substance: LORATADINE
     Indication: RHINITIS ALLERGIC
  5. ALENDRONATE [Concomitant]
     Active Substance: ALENDRONATE SODIUM
     Indication: OSTEOPENIA
  6. CALCIFORTE [Concomitant]
     Indication: HEADACHE

REACTIONS (12)
  - Urinary incontinence [Unknown]
  - Memory impairment [Unknown]
  - Crying [Unknown]
  - Stress [Unknown]
  - Pain [Unknown]
  - Depression [Unknown]
  - Asthenia [Unknown]
  - Headache [Unknown]
  - Nausea [Unknown]
  - Pyrexia [Unknown]
  - Irritability [Unknown]
  - Injection site pain [Unknown]

NARRATIVE: CASE EVENT DATE: 200608
